FAERS Safety Report 25473123 (Version 5)
Quarter: 2025Q4

REPORT INFORMATION
  Report Type: Spontaneous
  Country: EU (occurrence: EU)
  Receive Date: 20250624
  Receipt Date: 20251215
  Transmission Date: 20260118
  Serious: Yes (Hospitalization, Other)
  Sender: NOVARTIS
  Company Number: EU-002147023-NVSC2025FR099402

PATIENT
  Age: 5 Week
  Sex: Male
  Weight: 3.68 kg

DRUGS (1)
  1. ZOLGENSMA [Suspect]
     Active Substance: ONASEMNOGENE ABEPARVOVEC-XIOI
     Indication: Spinal muscular atrophy
     Dosage: UNK, ONCE/SINGLE
     Route: 042
     Dates: start: 20250428, end: 20250428

REACTIONS (11)
  - Myocarditis [Unknown]
  - Electrocardiogram ST segment elevation [Unknown]
  - Troponin increased [Unknown]
  - Blood creatine phosphokinase increased [Unknown]
  - Sinus tachycardia [Unknown]
  - Electrocardiogram repolarisation abnormality [Unknown]
  - N-terminal prohormone brain natriuretic peptide increased [Unknown]
  - Rhinovirus infection [Unknown]
  - Left ventricular hypertrophy [Unknown]
  - Electrocardiogram abnormal [Unknown]
  - Product use issue [Unknown]

NARRATIVE: CASE EVENT DATE: 20250522
